FAERS Safety Report 7309913-4 (Version None)
Quarter: 2011Q1

REPORT INFORMATION
  Report Type: 
  Country: None (occurrence: None)
  Receive Date: 20110224
  Receipt Date: 20110214
  Transmission Date: 20110831
  Serious: Yes (Life-Threatening, Hospitalization)
  Sender: FDA-Public Use
  Company Number: US-TEVA-267064USA

PATIENT
  Sex: Male

DRUGS (4)
  1. RIBAVIRIN [Suspect]
     Dates: start: 20101117
  2. PLACEBO (BLINDED) [Suspect]
     Indication: HEPATITIS C
     Route: 048
     Dates: start: 20101117, end: 20110127
  3. PEGINTERFERON ALFA-2A [Suspect]
     Indication: HEPATITIS C
     Route: 058
     Dates: start: 20101117, end: 20110127
  4. PSI-7977 (BLINDED), 680 [Suspect]
     Indication: HEPATITIS C
     Route: 048
     Dates: start: 20101117, end: 20110127

REACTIONS (1)
  - ACUTE MYOCARDIAL INFARCTION [None]
